FAERS Safety Report 17879866 (Version 2)
Quarter: 2020Q2

REPORT INFORMATION
  Report Type: Spontaneous
  Country: US (occurrence: US)
  Receive Date: 20200610
  Receipt Date: 20200615
  Transmission Date: 20200714
  Serious: Yes (Other)
  Sender: FDA-Public Use
  Company Number: US-PFIZER INC-2020223750

PATIENT
  Age: 58 Year
  Sex: Female
  Weight: 47.17 kg

DRUGS (2)
  1. NEURONTIN [Suspect]
     Active Substance: GABAPENTIN
     Indication: MULTIPLE SCLEROSIS
     Dosage: 400 MG, 2X/DAY [400MG CAPSULE; 2 A DAY]
  2. COPAXONE [Concomitant]
     Active Substance: GLATIRAMER ACETATE
     Indication: MULTIPLE SCLEROSIS
     Dosage: UNK

REACTIONS (7)
  - Product use in unapproved indication [Unknown]
  - Product use complaint [Unknown]
  - Off label use [Unknown]
  - Product size issue [Unknown]
  - Dysphagia [Unknown]
  - Foreign body in throat [Unknown]
  - Drug effective for unapproved indication [Unknown]
